FAERS Safety Report 6530934-3 (Version None)
Quarter: 2010Q1

REPORT INFORMATION
  Report Type: 
  Country: None (occurrence: None)
  Receive Date: 20100108
  Receipt Date: 20090629
  Transmission Date: 20100710
  Serious: No
  Sender: FDA-Public Use
  Company Number: A0791800A

PATIENT
  Age: 35 Year
  Sex: Female

DRUGS (3)
  1. LOVAZA [Suspect]
     Indication: PROPHYLAXIS
     Dosage: 4G PER DAY
     Route: 048
     Dates: end: 20090610
  2. UNSPECIFIED MEDICATION [Concomitant]
  3. VITAMIN AND MINERAL PRENATAL SUPPLEMENT W/ FOLIC ACID CAP [Concomitant]
     Route: 048

REACTIONS (1)
  - CONTUSION [None]
